FAERS Safety Report 16132955 (Version 1)
Quarter: 2019Q1

REPORT INFORMATION
  Report Type: Spontaneous
  Country: US (occurrence: US)
  Receive Date: 20190329
  Receipt Date: 20190329
  Transmission Date: 20190418
  Serious: No
  Sender: FDA-Public Use
  Company Number: US-ASTRAZENECA-2019SE45840

PATIENT
  Sex: Female

DRUGS (1)
  1. SEROQUEL [Suspect]
     Active Substance: QUETIAPINE FUMARATE
     Indication: SLEEP DISORDER
     Dosage: 25.0MG AS REQUIRED
     Route: 048

REACTIONS (6)
  - Off label use [Unknown]
  - Product use in unapproved indication [Unknown]
  - Feeling abnormal [Unknown]
  - Cataract [Unknown]
  - Intentional product misuse [Unknown]
  - Bipolar disorder [Unknown]
